FAERS Safety Report 11980431 (Version 3)
Quarter: 2016Q2

REPORT INFORMATION
  Report Type: Spontaneous
  Country: US (occurrence: US)
  Receive Date: 20160129
  Receipt Date: 20160621
  Transmission Date: 20160815
  Serious: Yes (Hospitalization)
  Sender: FDA-Public Use
  Company Number: US-ELI_LILLY_AND_COMPANY-US201601010178

PATIENT
  Sex: Male

DRUGS (2)
  1. AXIRON [Suspect]
     Active Substance: TESTOSTERONE
     Indication: BLOOD TESTOSTERONE DECREASED
     Dosage: 60 MG, QD
     Route: 065
     Dates: start: 201208, end: 201411
  2. AXIRON [Suspect]
     Active Substance: TESTOSTERONE
     Indication: FATIGUE
     Dosage: 30 MG, QOD
     Route: 065

REACTIONS (6)
  - Muscular weakness [Unknown]
  - Asthenia [Unknown]
  - Coronary artery occlusion [Unknown]
  - Pain in extremity [Unknown]
  - Skin odour abnormal [Unknown]
  - Musculoskeletal pain [Unknown]
